FAERS Safety Report 7800593-8 (Version None)
Quarter: 2011Q4

REPORT INFORMATION
  Report Type: 
  Country: None (occurrence: None)
  Receive Date: 20111006
  Receipt Date: 20110929
  Transmission Date: 20120403
  Serious: Yes (Other)
  Sender: FDA-Public Use
  Company Number: US-ACTELION-A-US2011-54843

PATIENT

DRUGS (1)
  1. TRACLEER [Suspect]
     Indication: PULMONARY ARTERIAL HYPERTENSION
     Dosage: UNK
     Route: 048
     Dates: start: 20061101

REACTIONS (7)
  - CATARACT OPERATION [None]
  - PALPITATIONS [None]
  - RECTAL HAEMORRHAGE [None]
  - RASH [None]
  - CATARACT [None]
  - HAEMATOCHEZIA [None]
  - JOINT SWELLING [None]
